FAERS Safety Report 8516155-3 (Version None)
Quarter: 2012Q3

REPORT INFORMATION
  Report Type: 
  Country: None (occurrence: None)
  Receive Date: 20120717
  Receipt Date: 20120712
  Transmission Date: 20120928
  Serious: Yes (Other)
  Sender: FDA-Public Use
  Company Number: BR-ABBOTT-12P-020-0955993-00

PATIENT
  Sex: Female
  Weight: 51 kg

DRUGS (4)
  1. LEVONORGESTREL AND ETHINYL ESTRADIOL [Concomitant]
     Indication: PROPHYLAXIS
  2. LEVONORGESTREL AND ETHINYL ESTRADIOL [Concomitant]
     Indication: PREGNANCY
  3. AMOXICILLIN [Suspect]
     Indication: GINGIVITIS
  4. HUMIRA [Suspect]
     Indication: RHEUMATOID ARTHRITIS
     Route: 058
     Dates: start: 20111001

REACTIONS (2)
  - GINGIVITIS [None]
  - RASH MACULAR [None]
